APPROVED DRUG PRODUCT: HYPAQUE
Active Ingredient: DIATRIZOATE MEGLUMINE
Strength: 30%
Dosage Form/Route: INJECTABLE;INJECTION
Application: N016403 | Product #002
Applicant: GE HEALTHCARE
Approved: Approved Prior to Jan 1, 1982 | RLD: No | RS: No | Type: DISCN